FAERS Safety Report 21410498 (Version 1)
Quarter: 2022Q4

REPORT INFORMATION
  Report Type: Spontaneous
  Country: US (occurrence: None)
  Receive Date: 20221005
  Receipt Date: 20221005
  Transmission Date: 20230112
  Serious: No
  Sender: FDA-Public Use
  Company Number: 2022A332593

PATIENT
  Age: 71 Year
  Sex: Female

DRUGS (16)
  1. ROSUVASTATIN [Suspect]
     Active Substance: ROSUVASTATIN
     Indication: Product used for unknown indication
     Route: 048
  2. BYDUREON [Suspect]
     Active Substance: EXENATIDE
     Route: 058
  3. PRILOSEC [Suspect]
     Active Substance: OMEPRAZOLE MAGNESIUM
     Route: 048
  4. OMEPRAZOLE [Suspect]
     Active Substance: OMEPRAZOLE
     Route: 048
  5. CABOMETYX [Suspect]
     Active Substance: CABOZANTINIB S-MALATE
     Indication: Gastrointestinal stromal tumour
     Route: 065
     Dates: start: 20220304, end: 20220420
  6. CABOMETYX [Suspect]
     Active Substance: CABOZANTINIB S-MALATE
     Indication: Gastrointestinal stromal tumour
     Dosage: 40.0MG UNKNOWN
     Route: 065
  7. GABAPENTIN [Concomitant]
     Active Substance: GABAPENTIN
  8. HYDROCHLOROTHIAZIDE [Concomitant]
     Active Substance: HYDROCHLOROTHIAZIDE
  9. LISINOPRIL [Concomitant]
     Active Substance: LISINOPRIL
  10. MELOXICAM [Concomitant]
     Active Substance: MELOXICAM
  11. TRAMADOL [Concomitant]
     Active Substance: TRAMADOL
  12. TRULICITY [Concomitant]
     Active Substance: DULAGLUTIDE
  13. TRESIBA [Concomitant]
     Active Substance: INSULIN DEGLUDEC
  14. LOSARTAN [Concomitant]
     Active Substance: LOSARTAN
  15. VITAMIN D3 [Concomitant]
     Active Substance: CHOLECALCIFEROL
  16. VITAFUSION WOMENS [Concomitant]

REACTIONS (18)
  - Nasal ulcer [Not Recovered/Not Resolved]
  - Skin ulcer [Unknown]
  - Joint swelling [Unknown]
  - Tooth disorder [Unknown]
  - Blister [Unknown]
  - Fatigue [Unknown]
  - Constipation [Recovered/Resolved]
  - Blood pressure increased [Recovering/Resolving]
  - Hepatic enzyme increased [Unknown]
  - Taste disorder [Not Recovered/Not Resolved]
  - Diarrhoea [Unknown]
  - Rash macular [Unknown]
  - Dizziness [Recovering/Resolving]
  - Arthralgia [Unknown]
  - Nausea [Unknown]
  - Headache [Recovering/Resolving]
  - Pain in extremity [Unknown]
  - Off label use [Unknown]
